FAERS Safety Report 4910495-2 (Version None)
Quarter: 2006Q1

REPORT INFORMATION
  Report Type: 
  Country: None (occurrence: None)
  Receive Date: 20060209
  Receipt Date: 20060125
  Transmission Date: 20060701
  Serious: Yes (Congenital Anomaly)
  Sender: FDA-Public Use
  Company Number: 8014744

PATIENT
  Sex: 0
  Weight: 2.835 kg

DRUGS (4)
  1. LEVETIRACETAM [Suspect]
     Indication: EPILEPSY
     Dosage: TRP
  2. VALPROATE SODIUM [Suspect]
     Indication: EPILEPSY
     Dosage: TRP
  3. LAMOTRIGINE [Suspect]
     Indication: EPILEPSY
     Dosage: TRP
  4. CLOBAZAM [Suspect]
     Indication: EPILEPSY
     Dosage: TRP

REACTIONS (2)
  - DRUG EXPOSURE DURING PREGNANCY [None]
  - SPINA BIFIDA [None]
